FAERS Safety Report 19100484 (Version 3)
Quarter: 2021Q2

REPORT INFORMATION
  Report Type: Spontaneous
  Country: IT (occurrence: IT)
  Receive Date: 20210407
  Receipt Date: 20210512
  Transmission Date: 20210717
  Serious: Yes (Other)
  Sender: FDA-Public Use
  Company Number: IT-CELLTRION INC.-2021IT004315

PATIENT

DRUGS (8)
  1. RITUXIMAB (UNKNOWN) [Suspect]
     Active Substance: RITUXIMAB
     Indication: TRANSPLANT REJECTION
     Dosage: 700 MG
     Route: 041
  2. MYCOPHENOLIC ACID. [Suspect]
     Active Substance: MYCOPHENOLIC ACID
     Indication: TRANSPLANT REJECTION
     Route: 065
  3. METHYLPREDNISOLONE. [Suspect]
     Active Substance: METHYLPREDNISOLONE
     Indication: TRANSPLANT REJECTION
     Route: 065
  4. RALTEGRAVIR. [Concomitant]
     Active Substance: RALTEGRAVIR
  5. EVEROLIMUS. [Suspect]
     Active Substance: EVEROLIMUS
     Indication: TRANSPLANT REJECTION
     Route: 065
  6. MARAVIROC [Concomitant]
     Active Substance: MARAVIROC
  7. LAMIVUDINE. [Concomitant]
     Active Substance: LAMIVUDINE
  8. CYCLOSPORINE. [Suspect]
     Active Substance: CYCLOSPORINE
     Indication: TRANSPLANT REJECTION
     Route: 065

REACTIONS (5)
  - CD4 lymphocytes decreased [Unknown]
  - Off label use [Unknown]
  - Leukopenia [Unknown]
  - Neutropenia [Recovered/Resolved]
  - CD8 lymphocytes decreased [Unknown]
